FAERS Safety Report 10030179 (Version 1)
Quarter: 2014Q1

REPORT INFORMATION
  Report Type: Spontaneous
  Country: US (occurrence: US)
  Receive Date: 20140323
  Receipt Date: 20140323
  Transmission Date: 20141002
  Serious: No
  Sender: FDA-Public Use
  Company Number: US-ALLERGAN-1310873US

PATIENT
  Sex: Female

DRUGS (1)
  1. LATISSE 0.03% [Suspect]
     Indication: GROWTH OF EYELASHES
     Dosage: UNK
     Route: 061
     Dates: end: 20130714

REACTIONS (6)
  - Inappropriate schedule of drug administration [Unknown]
  - Eyelid skin dryness [Recovering/Resolving]
  - Eyelid exfoliation [Recovering/Resolving]
  - Madarosis [Recovering/Resolving]
  - Madarosis [Recovering/Resolving]
  - Erythema of eyelid [Recovering/Resolving]
